FAERS Safety Report 9932494 (Version 1)
Quarter: 2014Q1

REPORT INFORMATION
  Report Type: Spontaneous
  Country: US (occurrence: US)
  Receive Date: 20140228
  Receipt Date: 20140228
  Transmission Date: 20141002
  Serious: Yes (Hospitalization)
  Sender: FDA-Public Use
  Company Number: US-GLAXOSMITHKLINE-A1017688A

PATIENT
  Age: 59 Year
  Sex: Female

DRUGS (6)
  1. LAMICTAL [Suspect]
     Indication: EPILEPSY
     Dosage: 100MG TWICE PER DAY
     Route: 048
     Dates: start: 1997
  2. IBUPROFEN [Concomitant]
  3. CLONAZEPAM [Concomitant]
  4. CITALOPRAM [Concomitant]
  5. KEPPRA [Concomitant]
  6. CLONOPIN [Concomitant]

REACTIONS (5)
  - Convulsion [Recovered/Resolved]
  - Contusion [Not Recovered/Not Resolved]
  - Musculoskeletal stiffness [Not Recovered/Not Resolved]
  - Joint swelling [Not Recovered/Not Resolved]
  - Arthralgia [Not Recovered/Not Resolved]
